FAERS Safety Report 7086814 (Version 3)
Quarter: 2013Q4

REPORT INFORMATION
  Report Type: Spontaneous
  Country: BR (occurrence: BR)
  Receive Date: 20090820
  Receipt Date: 20131029
  Transmission Date: 20140711
  Serious: Yes (Life-Threatening, Hospitalization)
  Sender: FDA-Public Use
  Company Number: BR-ROCHE-511271

PATIENT
  Age: 40 Year
  Sex: Female
  Weight: 68 kg

DRUGS (3)
  1. XENICAL [Suspect]
     Indication: WEIGHT CONTROL
     Route: 048
     Dates: start: 200704, end: 20070804
  2. SIBUTRAMINE [Suspect]
     Indication: WEIGHT CONTROL
     Route: 048
     Dates: start: 200704, end: 20070804
  3. DORMONID (BRAZIL) [Suspect]
     Indication: INSOMNIA
     Route: 048

REACTIONS (2)
  - Pancreatitis acute [Recovered/Resolved]
  - Weight decreased [Recovered/Resolved]
